FAERS Safety Report 4784464-X (Version None)
Quarter: 2005Q3

REPORT INFORMATION
  Report Type: 
  Country: None (occurrence: None)
  Receive Date: 20050930
  Receipt Date: 20050706
  Transmission Date: 20060218
  Serious: Yes (Other)
  Sender: FDA-Public Use
  Company Number: 2005GB01302

PATIENT
  Age: 31 Year
  Sex: Female
  Weight: 100 kg

DRUGS (4)
  1. SEROQUEL [Suspect]
     Indication: SCHIZOPHRENIA
     Route: 048
     Dates: start: 20041101
  2. ANAFRANIL [Suspect]
     Indication: SCHIZOAFFECTIVE DISORDER
     Route: 048
     Dates: start: 20041101
  3. NORMISON [Suspect]
     Indication: INSOMNIA
     Dates: start: 20041101, end: 20041206
  4. CLOZARIL [Suspect]
     Route: 048
     Dates: start: 20040501

REACTIONS (4)
  - HYPERGLYCAEMIA [None]
  - LIVER FUNCTION TEST ABNORMAL [None]
  - MICROCYTIC ANAEMIA [None]
  - WHITE BLOOD CELL COUNT DECREASED [None]
